FAERS Safety Report 6738480-9 (Version None)
Quarter: 2010Q2

REPORT INFORMATION
  Report Type: 
  Country: None (occurrence: None)
  Receive Date: 20100524
  Receipt Date: 20100511
  Transmission Date: 20101027
  Serious: Yes (Other)
  Sender: FDA-Public Use
  Company Number: PHHY2009CA37275

PATIENT
  Sex: Female

DRUGS (1)
  1. SANDOSTATIN LAR [Suspect]
     Indication: CARCINOID TUMOUR
     Dosage: 20 MG, EVERY 2 WEEKS
     Route: 030
     Dates: start: 20080101, end: 20091001

REACTIONS (6)
  - BLOOD PRESSURE SYSTOLIC INCREASED [None]
  - CATARACT [None]
  - FLUSHING [None]
  - SCIATICA [None]
  - SKIN EXFOLIATION [None]
  - VISUAL ACUITY REDUCED [None]
